FAERS Safety Report 10366191 (Version 2)
Quarter: 2014Q3

REPORT INFORMATION
  Report Type: Spontaneous
  Country: ZA (occurrence: ZA)
  Receive Date: 20140806
  Receipt Date: 20140815
  Transmission Date: 20150326
  Serious: Yes (Hospitalization, Other)
  Sender: FDA-Public Use
  Company Number: ZA-BAYER-2014-114600

PATIENT
  Age: 40 Year
  Sex: Female

DRUGS (2)
  1. MIRENA [Suspect]
     Active Substance: LEVONORGESTREL
     Indication: UTERINE LEIOMYOMA
  2. MIRENA [Suspect]
     Active Substance: LEVONORGESTREL
     Indication: MENORRHAGIA
     Dosage: 20 MCG/24HR, CONT
     Route: 015
     Dates: start: 20120104, end: 201407

REACTIONS (6)
  - Cardiac failure [Recovered/Resolved]
  - Genital haemorrhage [None]
  - Haemoglobin decreased [None]
  - Amenorrhoea [None]
  - Device expulsion [None]
  - Malaise [None]

NARRATIVE: CASE EVENT DATE: 2014
